FAERS Safety Report 14806199 (Version 3)
Quarter: 2018Q2

REPORT INFORMATION
  Report Type: Report from Study
  Country: None (occurrence: US)
  Receive Date: 20180425
  Receipt Date: 20180518
  Transmission Date: 20180711
  Serious: Yes (Death, Hospitalization, Other)
  Sender: FDA-Public Use
  Company Number: US-BAUSCH-BL-2018-012217

PATIENT
  Age: 70 Year
  Sex: Male

DRUGS (3)
  1. XIFAXAN [Suspect]
     Active Substance: RIFAXIMIN
     Route: 065
     Dates: start: 201801, end: 20180430
  2. XIFAXAN [Suspect]
     Active Substance: RIFAXIMIN
     Indication: HEPATIC CIRRHOSIS
     Route: 048
     Dates: start: 2017, end: 201712
  3. PANTOPRAZOLE [Concomitant]
     Active Substance: PANTOPRAZOLE
     Indication: PRODUCT USED FOR UNKNOWN INDICATION

REACTIONS (7)
  - Product supply issue [Unknown]
  - Condition aggravated [Not Recovered/Not Resolved]
  - Hepatic cirrhosis [Fatal]
  - Hepatic failure [Unknown]
  - Hepatic encephalopathy [Not Recovered/Not Resolved]
  - Renal failure [Unknown]
  - Hospice care [Unknown]

NARRATIVE: CASE EVENT DATE: 20180430
